FAERS Safety Report 5618539-X (Version None)
Quarter: 2008Q1

REPORT INFORMATION
  Report Type: 
  Country: None (occurrence: None)
  Receive Date: 20080204
  Receipt Date: 20080129
  Transmission Date: 20080703
  Serious: Yes (Hospitalization)
  Sender: FDA-Public Use
  Company Number: 163-20785-07120057

PATIENT
  Age: 82 Year
  Sex: Male

DRUGS (10)
  1. THALOMID [Suspect]
     Indication: MULTIPLE MYELOMA
     Dosage: 200 MG, 2 IN 1 D, ORAL
     Route: 048
     Dates: start: 20071017
  2. LASIX [Concomitant]
  3. ATENOLOL [Concomitant]
  4. ZANTAC 150 [Concomitant]
  5. CARDIA XT (DILTIAZEM HYDROCHLORIDE) [Concomitant]
  6. METFORMIN HCL [Concomitant]
  7. LISINOPRIL [Concomitant]
  8. IMIPRAMINE [Concomitant]
  9. VITAMIN B12 [Concomitant]
  10. DOXAZOSIN MESYLATE [Concomitant]

REACTIONS (1)
  - URINARY TRACT INFECTION [None]
